FAERS Safety Report 16172005 (Version 1)
Quarter: 2019Q2

REPORT INFORMATION
  Report Type: Spontaneous
  Country: US (occurrence: US)
  Receive Date: 20190409
  Receipt Date: 20190409
  Transmission Date: 20190711
  Serious: No
  Sender: FDA-Public Use
  Company Number: US-GLAXOSMITHKLINE-US2019060458

PATIENT
  Age: 33 Year

DRUGS (1)
  1. ALLI [Suspect]
     Active Substance: ORLISTAT
     Indication: WEIGHT DECREASED
     Dosage: UNK
     Dates: start: 20190301, end: 20190401

REACTIONS (3)
  - Drug ineffective [Unknown]
  - Abdominal distension [Unknown]
  - Diarrhoea [Unknown]
